FAERS Safety Report 6667840-X (Version None)
Quarter: 2010Q2

REPORT INFORMATION
  Report Type: 
  Country: None (occurrence: None)
  Receive Date: 20100405
  Receipt Date: 20100324
  Transmission Date: 20101027
  Serious: Yes (Life-Threatening, Other)
  Sender: FDA-Public Use
  Company Number: JP-PFIZER INC-2010034260

PATIENT
  Age: 70 Year
  Sex: Male

DRUGS (2)
  1. LIPITOR [Suspect]
     Indication: HYPERLIPIDAEMIA
     Dosage: 5 MG, 1X/DAY
     Route: 048
     Dates: start: 20100203, end: 20100310
  2. ALLOPURINOL [Concomitant]
     Dosage: 100 MG, DAILY
     Route: 048
     Dates: start: 20070411

REACTIONS (3)
  - HAEMORRHAGIC DIATHESIS [None]
  - HEAD INJURY [None]
  - THROMBOCYTOPENIA [None]
